FAERS Safety Report 19692026 (Version 1)
Quarter: 2021Q3

REPORT INFORMATION
  Report Type: Spontaneous
  Country: CA (occurrence: CA)
  Receive Date: 20210812
  Receipt Date: 20210812
  Transmission Date: 20211014
  Serious: Yes (Hospitalization)
  Sender: FDA-Public Use
  Company Number: CA-TAKEDA-2021TUS049358

PATIENT
  Age: 48 Year
  Sex: Female

DRUGS (1)
  1. RESOTRANS [Suspect]
     Active Substance: PRUCALOPRIDE SUCCINATE
     Indication: PRODUCT USED FOR UNKNOWN INDICATION
     Dosage: 1 MILLIGRAM
     Route: 065

REACTIONS (4)
  - Constipation [Unknown]
  - Incorrect dose administered [Unknown]
  - Abdominal pain [Unknown]
  - Off label use [Unknown]
